FAERS Safety Report 17651076 (Version 3)
Quarter: 2021Q1

REPORT INFORMATION
  Report Type: Report from Study
  Country: None (occurrence: US)
  Receive Date: 20200408
  Receipt Date: 20210104
  Transmission Date: 20210419
  Serious: Yes (Other)
  Sender: FDA-Public Use
  Company Number: US-ABBVIE-20K-163-3354138-00

PATIENT
  Age: 48 Year
  Sex: Female

DRUGS (2)
  1. SKYRIZI [Suspect]
     Active Substance: RISANKIZUMAB-RZAA
     Dosage: WEEK 4 THEN AFTER EVERY 12 WEEKS
     Route: 058
  2. SKYRIZI [Suspect]
     Active Substance: RISANKIZUMAB-RZAA
     Indication: PSORIASIS
     Dosage: WEEK 0
     Route: 058

REACTIONS (12)
  - Pain [Unknown]
  - Blister infected [Unknown]
  - Spinal disorder [Unknown]
  - Unevaluable event [Unknown]
  - Weight increased [Unknown]
  - Localised infection [Recovered/Resolved]
  - Lymphoedema [Unknown]
  - Infected skin ulcer [Unknown]
  - COVID-19 [Unknown]
  - Spinal fracture [Unknown]
  - Injection site bruising [Unknown]
  - Poor peripheral circulation [Unknown]

NARRATIVE: CASE EVENT DATE: 202009
